FAERS Safety Report 5015410-1 (Version None)
Quarter: 2006Q2

REPORT INFORMATION
  Report Type: 
  Country: None (occurrence: None)
  Receive Date: 20060530
  Receipt Date: 20060530
  Transmission Date: 20061013
  Serious: Yes (Other)
  Sender: FDA-Public Use
  Company Number: None

PATIENT
  Age: 62 Year
  Sex: Male
  Weight: 96.2 kg

DRUGS (11)
  1. CILOSTAZOL [Suspect]
  2. RAMIPRIL [Concomitant]
  3. FLUVASTATIN NA [Concomitant]
  4. FEXOFENADINE HCL [Concomitant]
  5. FLUNISOLIDE NASAL SPRAY [Concomitant]
  6. ATENOLOL [Concomitant]
  7. ALBUTEROL 90/ IPRATROP INHL [Concomitant]
  8. NITROGLYCERIN [Concomitant]
  9. TIOTROPIUM INHL [Concomitant]
  10. FORMOTEROL FUMARATE INHL [Concomitant]
  11. OMEPRAZOLE [Concomitant]

REACTIONS (1)
  - SWELLING [None]
